FAERS Safety Report 9559344 (Version 1)
Quarter: 2013Q3

REPORT INFORMATION
  Report Type: Spontaneous
  Country: US (occurrence: None)
  Receive Date: 20130906
  Receipt Date: 20130906
  Transmission Date: 20140515
  Serious: Yes (Other)
  Sender: FDA-Public Use
  Company Number: 163-POMAL-13070416

PATIENT
  Age: 48 Year
  Sex: Male

DRUGS (9)
  1. POMALYST (POMALIDOMIDE) (4 MILLIGRAM, CAPSULES) [Suspect]
     Indication: PLASMA CELL MYELOMA
     Route: 048
     Dates: start: 201304
  2. TAMIFLU(OSELTAMIVIR) [Concomitant]
  3. PROTONIX DR(TABLETS) [Concomitant]
  4. CITALOPRAM HBR(CITALOPRAM HYDROBROMIDE)(TABLETS) [Concomitant]
  5. ACYCLOVIR(ACICLOVIR)(CAPSULES) [Concomitant]
  6. HYDROCODONE/ACETAMINOPHEN(REMEDEINE)(SOLUTION) [Concomitant]
  7. ASPIRIN(TABLETS) [Concomitant]
  8. BACTRIM(BACTRIM)(TABLETS) [Concomitant]
  9. SKELAXIN(METAXALONE)(TABLETS) [Concomitant]

REACTIONS (1)
  - Adverse drug reaction [None]
